FAERS Safety Report 24083888 (Version 1)
Quarter: 2024Q3

REPORT INFORMATION
  Report Type: Spontaneous
  Country: FR (occurrence: FR)
  Receive Date: 20240712
  Receipt Date: 20240712
  Transmission Date: 20241017
  Serious: Yes (Other)
  Sender: AUROBINDO
  Company Number: FR-AFSSAPS-GR2024000827

PATIENT
  Age: 13 Year
  Sex: Female
  Weight: 40 kg

DRUGS (3)
  1. AMOXICILLIN [Suspect]
     Active Substance: AMOXICILLIN
     Indication: Lung disorder
     Dosage: 1 GRAM, 3 TIMES A DAY (1 G 3 TIMES/DAY)
     Route: 042
     Dates: start: 20240322, end: 20240327
  2. CLAVULANIC ACID [Suspect]
     Active Substance: CLAVULANIC ACID
     Indication: Lung disorder
     Dosage: 200 MILLIGRAM, 3 TIMES A DAY (200 MG 3 TIMES/DAY)
     Route: 042
     Dates: start: 20240322, end: 20240327
  3. KETAMINE HYDROCHLORIDE [Suspect]
     Active Substance: KETAMINE HYDROCHLORIDE
     Indication: Sedation
     Dosage: 1 MILLILITER, EVERY HOUR (FLOW RATE: 1 ML/H)
     Route: 042
     Dates: start: 20240320, end: 20240326

REACTIONS (2)
  - Cholestasis [Recovering/Resolving]
  - Hepatic cytolysis [Recovering/Resolving]

NARRATIVE: CASE EVENT DATE: 20240326
